FAERS Safety Report 5696600-1 (Version None)
Quarter: 2008Q2

REPORT INFORMATION
  Report Type: 
  Country: None (occurrence: None)
  Receive Date: 20080404
  Receipt Date: 20080404
  Transmission Date: 20081010
  Serious: Yes (Hospitalization)
  Sender: FDA-Public Use
  Company Number: None

PATIENT
  Age: 41 Year
  Sex: Female
  Weight: 67.1324 kg

DRUGS (3)
  1. CYMBALTA [Suspect]
     Indication: FIBROMYALGIA
     Dosage: 1 TAB 1 A DAY PO
     Route: 048
     Dates: start: 20080304, end: 20080325
  2. CYMBALTA [Suspect]
     Indication: PAIN
     Dosage: 1 TAB 1 A DAY PO
     Route: 048
     Dates: start: 20080304, end: 20080325
  3. CYMBALTA [Suspect]
     Indication: SMOKING CESSATION THERAPY
     Dosage: 1 TAB 1 A DAY PO
     Route: 048
     Dates: start: 20080304, end: 20080325

REACTIONS (11)
  - ABASIA [None]
  - ASTHENIA [None]
  - COGNITIVE DISORDER [None]
  - DEPRESSION [None]
  - GAIT DISTURBANCE [None]
  - IMMOBILE [None]
  - IMPAIRED DRIVING ABILITY [None]
  - LOSS OF CONSCIOUSNESS [None]
  - MALAISE [None]
  - NO THERAPEUTIC RESPONSE [None]
  - PAIN [None]
